FAERS Safety Report 4750272-9 (Version None)
Quarter: 2005Q3

REPORT INFORMATION
  Report Type: 
  Country: None (occurrence: None)
  Receive Date: 20050819
  Receipt Date: 20050809
  Transmission Date: 20060218
  Serious: Yes (Other)
  Sender: FDA-Public Use
  Company Number: 2005113107

PATIENT
  Sex: Female

DRUGS (6)
  1. VERAPAMIL HYDROCHLORIDE [Suspect]
     Indication: HYPERTENSION
     Dosage: 240 MG (DAILY)
     Dates: end: 20050101
  2. DILTIAZEM [Suspect]
     Indication: HYPERTENSION
     Dosage: 180 MG (DAILY)
     Dates: end: 20050101
  3. DILTIAZEM [Suspect]
     Indication: HYPERTENSION
     Dosage: 180 MG (DAILY), ORAL
     Route: 048
     Dates: start: 20050702
  4. GLICLALZIDE (GLICLAZIDE) [Concomitant]
  5. ALTACE [Concomitant]
  6. ZYRTEC [Concomitant]

REACTIONS (6)
  - DRY EYE [None]
  - HYPERGLYCAEMIA [None]
  - MUSCULOSKELETAL DISORDER [None]
  - OEDEMA PERIPHERAL [None]
  - PHARMACEUTICAL PRODUCT COMPLAINT [None]
  - VISUAL DISTURBANCE [None]
